FAERS Safety Report 11417554 (Version 1)
Quarter: 2015Q3

REPORT INFORMATION
  Report Type: Spontaneous
  Country: US (occurrence: US)
  Receive Date: 20150825
  Receipt Date: 20150825
  Transmission Date: 20151125
  Serious: No
  Sender: FDA-Public Use
  Company Number: US-ACTELION PHARMACEUTICALS US, INC.-A-US2015-122878

PATIENT
  Age: 80 Year
  Sex: Male

DRUGS (2)
  1. ACTIMMUNE [Concomitant]
     Active Substance: INTERFERON GAMMA-1B
  2. VALCHLOR [Suspect]
     Active Substance: MECHLORETHAMINE
     Indication: MYCOSIS FUNGOIDES
     Dosage: UNK UNK, QD
     Route: 061
     Dates: start: 20150606

REACTIONS (1)
  - Blister [Unknown]
